FAERS Safety Report 15725951 (Version 1)
Quarter: 2018Q4

REPORT INFORMATION
  Report Type: Spontaneous
  Country: SA (occurrence: SA)
  Receive Date: 20181216
  Receipt Date: 20181216
  Transmission Date: 20190205
  Serious: Yes (Other)
  Sender: FDA-Public Use
  Company Number: PHHY2018SA186172

PATIENT
  Age: 6 Year
  Sex: Male

DRUGS (1)
  1. VIGAMOX [Suspect]
     Active Substance: MOXIFLOXACIN HYDROCHLORIDE
     Indication: ULCERATIVE KERATITIS
     Dosage: DOSE WAS EVERY TWO HOURS AT DAY TIME
     Route: 047

REACTIONS (4)
  - Off label use [Unknown]
  - Conjunctival oedema [Unknown]
  - Eye oedema [Unknown]
  - Eye swelling [Unknown]

NARRATIVE: CASE EVENT DATE: 20181205
